FAERS Safety Report 9841204 (Version 2)
Quarter: 2014Q1

REPORT INFORMATION
  Report Type: Spontaneous
  Country: GB (occurrence: GB)
  Receive Date: 20140124
  Receipt Date: 20140319
  Transmission Date: 20141002
  Serious: Yes (Death, Life-Threatening, Hospitalization)
  Sender: FDA-Public Use
  Company Number: GB-PFIZER INC-2014018264

PATIENT
  Age: 69 Year
  Sex: Male
  Weight: 114 kg

DRUGS (4)
  1. TAZOCIN [Suspect]
     Indication: NEUTROPENIC SEPSIS
     Dosage: 4.5 G, 4X/DAY
     Route: 042
     Dates: start: 20121229, end: 20140102
  2. AZACITIDINE [Suspect]
     Indication: ACUTE MYELOID LEUKAEMIA
     Dosage: UNK
     Route: 058
     Dates: start: 20121108, end: 20121207
  3. ALLOPURINOL [Concomitant]
     Dosage: UNK
  4. PARACETAMOL [Concomitant]
     Dosage: UNK

REACTIONS (4)
  - Coma hepatic [Fatal]
  - Hepatic encephalopathy [Not Recovered/Not Resolved]
  - Hyperbilirubinaemia [Not Recovered/Not Resolved]
  - Jaundice [Not Recovered/Not Resolved]
